FAERS Safety Report 16062581 (Version 1)
Quarter: 2019Q1

REPORT INFORMATION
  Report Type: Report from Study
  Country: None (occurrence: IE)
  Receive Date: 20190312
  Receipt Date: 20190312
  Transmission Date: 20190418
  Serious: Yes (Other)
  Sender: FDA-Public Use
  Company Number: IE-ABBVIE-19K-229-2695861-00

PATIENT
  Sex: Female

DRUGS (2)
  1. HUMIRA [Suspect]
     Active Substance: ADALIMUMAB
     Route: 058
     Dates: start: 20190301
  2. HUMIRA [Suspect]
     Active Substance: ADALIMUMAB
     Indication: ARTHRITIS
     Route: 058
     Dates: end: 2012

REACTIONS (5)
  - Neoplasm malignant [Recovered/Resolved]
  - Vaginal lesion [Recovered/Resolved]
  - Immunodeficiency [Recovered/Resolved]
  - Stress [Recovered/Resolved]
  - Arthritis [Recovered/Resolved]
